FAERS Safety Report 23365734 (Version 1)
Quarter: 2024Q1

REPORT INFORMATION
  Report Type: Spontaneous
  Country: US (occurrence: None)
  Receive Date: 20240103
  Receipt Date: 20240103
  Transmission Date: 20240410
  Serious: Yes (Other)
  Sender: FDA-Public Use
  Company Number: None

PATIENT
  Age: 60 Year
  Sex: Male
  Weight: 115.65 kg

DRUGS (5)
  1. WEGOVY [Suspect]
     Active Substance: SEMAGLUTIDE
     Indication: Weight decreased
     Dosage: OTHER QUANTITY : 4 INJECTION(S);?OTHER FREQUENCY : WEEKLY;?
     Route: 058
     Dates: start: 20231226, end: 20240102
  2. LIPITOR [Concomitant]
     Active Substance: ATORVASTATIN CALCIUM
  3. FLUOXETINE [Concomitant]
     Active Substance: FLUOXETINE HYDROCHLORIDE
  4. LISINOPRIL [Concomitant]
     Active Substance: LISINOPRIL
  5. VITAMIN D3 [Concomitant]
     Active Substance: CHOLECALCIFEROL

REACTIONS (4)
  - Hyponatraemia [None]
  - Electrolyte imbalance [None]
  - Balance disorder [None]
  - Gait disturbance [None]

NARRATIVE: CASE EVENT DATE: 20231231
